FAERS Safety Report 24911594 (Version 1)
Quarter: 2025Q1

REPORT INFORMATION
  Report Type: Spontaneous
  Country: US (occurrence: US)
  Receive Date: 20250131
  Receipt Date: 20250131
  Transmission Date: 20250409
  Serious: Yes (Hospitalization, Other)
  Sender: SANDOZ
  Company Number: US-002147023-NVSC2025US013223

PATIENT
  Age: 72 Year
  Sex: Female

DRUGS (8)
  1. PACLITAXEL [Suspect]
     Active Substance: PACLITAXEL
     Route: 065
  2. PACLITAXEL [Suspect]
     Active Substance: PACLITAXEL
     Indication: Product used for unknown indication
     Route: 065
  3. ZOMETA [Suspect]
     Active Substance: ZOLEDRONIC ACID
     Indication: Product used for unknown indication
     Route: 065
  4. CAPECITABINE [Concomitant]
     Active Substance: CAPECITABINE
     Indication: Product used for unknown indication
     Route: 065
  5. IRON [Concomitant]
     Active Substance: IRON
     Indication: Product used for unknown indication
     Route: 048
  6. KEPPRA [Concomitant]
     Active Substance: LEVETIRACETAM
     Indication: Seizure
     Route: 065
  7. TUKYSA [Concomitant]
     Active Substance: TUCATINIB
     Indication: Product used for unknown indication
     Route: 065
  8. XELODA [Concomitant]
     Active Substance: CAPECITABINE
     Indication: Product used for unknown indication
     Route: 065
     Dates: start: 202310

REACTIONS (24)
  - Gait disturbance [Unknown]
  - Hypothyroidism [Unknown]
  - Metastases to central nervous system [Unknown]
  - Metastases to bone [Unknown]
  - Metastases to liver [Unknown]
  - Back pain [Unknown]
  - Asthenia [Unknown]
  - Blood calcium increased [Unknown]
  - Blood albumin abnormal [Unknown]
  - Calcium ionised increased [Unknown]
  - White blood cell count abnormal [Unknown]
  - Breast mass [Unknown]
  - Adverse event [Unknown]
  - Hypertransaminasaemia [Unknown]
  - Ammonia increased [Unknown]
  - Thyroid disorder [Unknown]
  - Ejection fraction decreased [Unknown]
  - Compression fracture [Unknown]
  - Lethargy [Unknown]
  - Blood thyroid stimulating hormone abnormal [Unknown]
  - Confusional state [Recovering/Resolving]
  - Paraesthesia [Unknown]
  - Hypoaesthesia [Unknown]
  - Off label use [Unknown]

NARRATIVE: CASE EVENT DATE: 20230124
